FAERS Safety Report 16195895 (Version 1)
Quarter: 2019Q2

REPORT INFORMATION
  Report Type: Spontaneous
  Country: US (occurrence: US)
  Receive Date: 20190415
  Receipt Date: 20190415
  Transmission Date: 20190711
  Serious: No
  Sender: FDA-Public Use
  Company Number: US-AMGEN-USASP2019056803

PATIENT
  Age: 85 Year
  Sex: Female

DRUGS (2)
  1. REPATHA [Suspect]
     Active Substance: EVOLOCUMAB
     Dosage: 140 MILLIGRAM, Q2WK
     Route: 065
     Dates: start: 20190407
  2. REPATHA [Suspect]
     Active Substance: EVOLOCUMAB
     Indication: BLOOD CHOLESTEROL INCREASED
     Dosage: 140 UNK
     Route: 065
     Dates: start: 20190217

REACTIONS (4)
  - Wrong technique in product usage process [Unknown]
  - Accidental exposure to product [Unknown]
  - Injection site bruising [Unknown]
  - Device issue [Unknown]

NARRATIVE: CASE EVENT DATE: 20190407
